FAERS Safety Report 16475870 (Version 2)
Quarter: 2019Q3

REPORT INFORMATION
  Report Type: Report from Study
  Country: US (occurrence: US)
  Receive Date: 20190625
  Receipt Date: 20190920
  Transmission Date: 20191004
  Serious: Yes (Death, Other)
  Sender: FDA-Public Use
  Company Number: US-PFIZER INC-2019051685

PATIENT
  Age: 61 Year
  Sex: Female

DRUGS (3)
  1. LETROZOLE. [Concomitant]
     Active Substance: LETROZOLE
     Dosage: UNK
  2. IBRANCE [Suspect]
     Active Substance: PALBOCICLIB
     Indication: BREAST CANCER FEMALE
     Dosage: 125 MG, CYCLIC (DAILY, 3 WEEKS ON AND 1 WEEK OFF)
     Route: 048
     Dates: start: 20190124, end: 2019
  3. IBRANCE [Suspect]
     Active Substance: PALBOCICLIB
     Dosage: 125 MG, DAILY
     Route: 048
     Dates: start: 20190614, end: 20190618

REACTIONS (8)
  - Nasal congestion [Recovered/Resolved]
  - Tumour marker increased [Recovering/Resolving]
  - Abdominal pain upper [Recovering/Resolving]
  - Nasopharyngitis [Recovered/Resolved]
  - White blood cell count decreased [Not Recovered/Not Resolved]
  - Multiple organ dysfunction syndrome [Unknown]
  - Death [Fatal]
  - Nausea [Not Recovered/Not Resolved]

NARRATIVE: CASE EVENT DATE: 2019
